FAERS Safety Report 5331237-5 (Version None)
Quarter: 2007Q2

REPORT INFORMATION
  Report Type: 
  Country: None (occurrence: None)
  Receive Date: 20070522
  Receipt Date: 20070516
  Transmission Date: 20071010
  Serious: Yes (Other)
  Sender: FDA-Public Use
  Company Number: US-MERCK-0705USA03162

PATIENT
  Age: 68 Year
  Sex: Female

DRUGS (2)
  1. FOSAMAX [Suspect]
     Indication: OSTEOPOROSIS
     Route: 048
     Dates: start: 20060501
  2. CALCIUM (UNSPECIFIED) [Concomitant]
     Route: 065

REACTIONS (1)
  - RETINAL VEIN OCCLUSION [None]
